FAERS Safety Report 9388003 (Version 1)
Quarter: 2013Q3

REPORT INFORMATION
  Report Type: Spontaneous
  Country: US (occurrence: None)
  Receive Date: 20130701
  Receipt Date: 20130701
  Transmission Date: 20140515
  Serious: Yes (Death)
  Sender: FDA-Public Use
  Company Number: ABR_00980_2013

PATIENT
  Sex: Female

DRUGS (1)
  1. NIMODIPINE [Suspect]
     Indication: SUBARACHNOID HAEMORRHAGE
     Dosage: (60 MG 1X, DF INTRAVENOUS (NOT OTHERWISE SPECIFIED))
     Route: 042

REACTIONS (2)
  - Incorrect route of drug administration [None]
  - Circumstance or information capable of leading to medication error [None]
